FAERS Safety Report 9214152 (Version 4)
Quarter: 2014Q1

REPORT INFORMATION
  Report Type: Spontaneous
  Country: US (occurrence: US)
  Receive Date: 20130405
  Receipt Date: 20140121
  Transmission Date: 20141002
  Serious: Yes (Hospitalization, Other)
  Sender: FDA-Public Use
  Company Number: US-MERCK-1304USA002137

PATIENT
  Sex: Female

DRUGS (7)
  1. FOSAMAX [Suspect]
     Indication: OSTEOPOROSIS
     Dosage: 10 MG, UNK
     Route: 048
     Dates: start: 199701, end: 200201
  2. FOSAMAX [Suspect]
     Dosage: 70 MG, UNK
     Route: 048
     Dates: start: 200201, end: 200802
  3. FOSAMAX [Suspect]
     Dosage: 70 UNK, UNK
  4. ALENDRONATE SODIUM [Suspect]
     Indication: OSTEOPOROSIS
     Dosage: 70 MG, UNK
     Route: 048
     Dates: start: 200802, end: 201101
  5. CORTICOSTEROIDS (UNSPECIFIED) [Concomitant]
  6. VITAMINS (UNSPECIFIED) [Concomitant]
  7. CALCIUM (UNSPECIFIED) [Concomitant]

REACTIONS (27)
  - Femur fracture [Unknown]
  - Intramedullary rod insertion [Unknown]
  - Femur fracture [Unknown]
  - Mastectomy [Unknown]
  - Mastectomy [Unknown]
  - Foot fracture [Unknown]
  - Foot fracture [Unknown]
  - Knee arthroplasty [Unknown]
  - Breast cancer [Unknown]
  - Arthritis [Unknown]
  - Fall [Unknown]
  - Aortic elongation [Unknown]
  - Arteriosclerosis [Unknown]
  - Pulmonary fibrosis [Unknown]
  - Emphysema [Unknown]
  - Cataract operation [Unknown]
  - Intraocular lens implant [Unknown]
  - Hyperthyroidism [Unknown]
  - Adenotonsillectomy [Unknown]
  - Atrial fibrillation [Unknown]
  - Hypokalaemia [Unknown]
  - Hypomagnesaemia [Unknown]
  - Phlebitis [Recovered/Resolved]
  - Cardiac disorder [Unknown]
  - Hypercholesterolaemia [Unknown]
  - Neck pain [Not Recovered/Not Resolved]
  - Back pain [Not Recovered/Not Resolved]
